FAERS Safety Report 8467443-0 (Version None)
Quarter: 2012Q2

REPORT INFORMATION
  Report Type: 
  Country: None (occurrence: None)
  Receive Date: 20120626
  Receipt Date: 20120405
  Transmission Date: 20120825
  Serious: No
  Sender: FDA-Public Use
  Company Number: US-ASTRAZENECA-2012SE15216

PATIENT
  Age: 25 Year
  Sex: Male

DRUGS (3)
  1. LEVOXYL [Concomitant]
     Indication: THYROID DISORDER
  2. CAPRELSA [Suspect]
     Indication: THYROID THERAPY
     Route: 048
     Dates: start: 20120101
  3. LEXAPRO [Concomitant]
     Indication: DEPRESSION

REACTIONS (2)
  - RASH [None]
  - EXCORIATION [None]
